FAERS Safety Report 18859547 (Version 2)
Quarter: 2021Q2

REPORT INFORMATION
  Report Type: Spontaneous
  Country: None (occurrence: US)
  Receive Date: 20210208
  Receipt Date: 20210517
  Transmission Date: 20210717
  Serious: Yes (Other)
  Sender: FDA-Public Use
  Company Number: US-GLAXOSMITHKLINE-US2021GSK028289

PATIENT
  Sex: Female

DRUGS (6)
  1. RANITIDINE. [Suspect]
     Active Substance: RANITIDINE
     Indication: DYSPEPSIA
     Dosage: 25 MG
     Route: 065
     Dates: start: 200512, end: 202004
  2. RANITIDINE. [Suspect]
     Active Substance: RANITIDINE
     Indication: ATRIAL FIBRILLATION
  3. RANITIDINE. [Suspect]
     Active Substance: RANITIDINE
     Indication: DYSPEPSIA
     Dosage: 25 MG
     Route: 065
     Dates: start: 200512, end: 202004
  4. RANITIDINE. [Suspect]
     Active Substance: RANITIDINE
     Indication: ATRIAL FIBRILLATION
  5. RANITIDINE. [Suspect]
     Active Substance: RANITIDINE
     Indication: ATRIAL FIBRILLATION
  6. RANITIDINE. [Suspect]
     Active Substance: RANITIDINE
     Indication: ATRIAL FIBRILLATION

REACTIONS (1)
  - Breast cancer [Unknown]
